FAERS Safety Report 6756643-3 (Version None)
Quarter: 2010Q2

REPORT INFORMATION
  Report Type: 
  Country: None (occurrence: None)
  Receive Date: 20100604
  Receipt Date: 20100528
  Transmission Date: 20101027
  Serious: Yes (Other)
  Sender: FDA-Public Use
  Company Number: JP-MERCK-1006USA00155

PATIENT
  Age: 61 Year
  Sex: Male

DRUGS (4)
  1. JANUVIA [Suspect]
     Indication: TYPE 2 DIABETES MELLITUS
     Route: 048
     Dates: start: 20100228, end: 20100329
  2. AMLODIPINE BESYLATE [Concomitant]
     Indication: HYPERTENSION
     Route: 065
     Dates: end: 20100329
  3. AMARYL [Concomitant]
     Indication: HYPOGLYCAEMIA
     Route: 065
     Dates: end: 20100329
  4. ACTOS [Concomitant]
     Indication: HYPOGLYCAEMIA
     Route: 065
     Dates: end: 20100329

REACTIONS (1)
  - HYPERGLYCAEMIA [None]
